FAERS Safety Report 7748308-6 (Version None)
Quarter: 2011Q3

REPORT INFORMATION
  Report Type: 
  Country: None (occurrence: None)
  Receive Date: 20110913
  Receipt Date: 20110907
  Transmission Date: 20111222
  Serious: Yes (Other)
  Sender: FDA-Public Use
  Company Number: PHHY2011DE79680

PATIENT
  Sex: Female
  Weight: 79 kg

DRUGS (7)
  1. ZOMETA [Suspect]
     Dosage: 4 MG/ 5ML EVERY 4 WEEKS
     Route: 042
     Dates: end: 20100902
  2. ENALAPRIL MALEATE [Concomitant]
     Dosage: 10 MG, 1-0-1/2
     Dates: start: 20100311
  3. SIMVASTATIN [Concomitant]
     Dosage: 60 MG, 0-0-1/2
     Dates: start: 20100311
  4. BISOBETA [Concomitant]
     Dosage: 25 MG, 1/2-0-1/2
     Dates: start: 20100311
  5. DICLO [Concomitant]
     Dosage: 25 MG, 1-0-1
     Dates: start: 20100311
  6. ARIMIDEX [Concomitant]
     Dosage: 1 DF, QD
     Dates: start: 20100311
  7. ZOMETA [Suspect]
     Indication: PROPHYLAXIS
     Dosage: 4 MG/ 5ML EVERY 4 WEEKS
     Route: 042
     Dates: start: 20100211

REACTIONS (2)
  - GENERAL PHYSICAL HEALTH DETERIORATION [None]
  - CREATININE RENAL CLEARANCE DECREASED [None]
